FAERS Safety Report 8798142 (Version 2)
Quarter: 2012Q4

REPORT INFORMATION
  Report Type: 
  Country: GB (occurrence: GB)
  Receive Date: 20120920
  Receipt Date: 20121005
  Transmission Date: 20130627
  Serious: Yes (Disabling)
  Sender: FDA-Public Use
  Company Number: GB-AMGEN-GBRSP2012058960

PATIENT
  Age: 48 Year
  Sex: Male
  Weight: 121.8 kg

DRUGS (1)
  1. ETANERCEPT [Suspect]
     Indication: PSORIASIS
     Dosage: 50 mg, UNK
     Route: 058
     Dates: start: 20120701, end: 20120823

REACTIONS (2)
  - Cerebral infarction [Recovering/Resolving]
  - Muscular weakness [Recovering/Resolving]
